FAERS Safety Report 8861047 (Version 1)
Quarter: 2012Q4

REPORT INFORMATION
  Report Type: Spontaneous
  Country: GB (occurrence: None)
  Receive Date: 20121022
  Receipt Date: 20121022
  Transmission Date: 20130627
  Serious: Yes (Other)
  Sender: FDA-Public Use
  Company Number: FK201203112

PATIENT
  Age: 63 Year
  Sex: Male
  Weight: 79 kg

DRUGS (5)
  1. IRINOTECAN [Suspect]
     Indication: COLORECTAL CANCER METASTATIC
  2. LEUCOVORIN CALCIUM [Suspect]
     Indication: COLORECTAL CANCER METASTATIC
  3. FLUOROURACIL (FLUOROURACIL) [Suspect]
     Indication: COLORECTAL CANCER METASTATIC
  4. ELOXATIN [Suspect]
     Indication: COLORECTAL CANCER METASTATIC
     Route: 042
     Dates: start: 20080827, end: 20081008
  5. CAPECITABINE [Concomitant]

REACTIONS (3)
  - Constipation [None]
  - Neurotoxicity [None]
  - Paraesthesia [None]
